FAERS Safety Report 19709537 (Version 2)
Quarter: 2021Q3

REPORT INFORMATION
  Report Type: Spontaneous
  Country: IT (occurrence: IT)
  Receive Date: 20210817
  Receipt Date: 20210824
  Transmission Date: 20211014
  Serious: Yes (Death, Life-Threatening, Hospitalization, Other)
  Sender: FDA-Public Use
  Company Number: IT-MYLANLABS-2021M1050851

PATIENT
  Age: 56 Year
  Sex: Male

DRUGS (16)
  1. ETOPOSIDE. [Suspect]
     Active Substance: ETOPOSIDE
     Indication: CHEMOTHERAPY
     Dosage: 100 MG/M2, CYCLIC (DAY1?3)  (ALTERNATIVELY EVERY THREE WEEKS)
  2. ETOPOSIDE. [Suspect]
     Active Substance: ETOPOSIDE
     Indication: PLEUROPULMONARY BLASTOMA
  3. PREDNISONE. [Concomitant]
     Active Substance: PREDNISONE
     Indication: IMMUNOSUPPRESSANT DRUG THERAPY
     Dosage: 20 MG, DAILY (ADJUSTED TO REACH BLOOD CONCENTRATIONS )
     Dates: start: 1999
  4. HOLOXAN [Suspect]
     Active Substance: IFOSFAMIDE
     Indication: PLEUROPULMONARY BLASTOMA
     Dosage: DAYS 1?3 ADMINISTERED ALTERNATIVELY EVERY THREE WEEKS
     Route: 065
  5. CISPLATIN. [Suspect]
     Active Substance: CISPLATIN
     Indication: CHEMOTHERAPY
     Dosage: 80 MG/M2 (DAY 1) (ALTERNATIVELY EVERY THREE WEEKS)
  6. ETOPOSIDE. [Suspect]
     Active Substance: ETOPOSIDE
     Indication: LUNG NEOPLASM MALIGNANT
  7. CYCLOSPORINE. [Concomitant]
     Active Substance: CYCLOSPORINE
     Indication: IMMUNOSUPPRESSANT DRUG THERAPY
     Dosage: 20 MG, DAILY (ADJUSTED TO REACH BLOOD CONCENTRATIONS)
     Dates: start: 1999
  8. CISPLATIN. [Suspect]
     Active Substance: CISPLATIN
     Indication: LUNG NEOPLASM MALIGNANT
  9. VINORELBINE [Suspect]
     Active Substance: VINORELBINE TARTRATE
     Indication: PLEUROPULMONARY BLASTOMA
     Dosage: 25 MILLIGRAM/SQ. METER DAY 1?8
     Route: 065
  10. EPIRUBICIN [Suspect]
     Active Substance: EPIRUBICIN
     Indication: CHEMOTHERAPY
     Dosage: 30 MG/M2, CYCLIC (EVERY 10DAYS)
  11. IFOSFAMIDE. [Suspect]
     Active Substance: IFOSFAMIDE
     Indication: CHEMOTHERAPY
     Dosage: 3 GRAM PER SQUARE METRE, CYCLE, (ALTERNATIVELY EVERY THREE WEEKS)
  12. CISPLATIN. [Suspect]
     Active Substance: CISPLATIN
     Indication: PLEUROPULMONARY BLASTOMA
  13. EPIRUBICIN [Suspect]
     Active Substance: EPIRUBICIN
     Indication: HEPATOCELLULAR CARCINOMA
     Dosage: UNK
  14. IFOSFAMIDE. [Suspect]
     Active Substance: IFOSFAMIDE
     Indication: LUNG NEOPLASM MALIGNANT
  15. CYCLOSPORINE. [Concomitant]
     Active Substance: CYCLOSPORINE
     Indication: LIVER TRANSPLANT
  16. PREDNISONE. [Concomitant]
     Active Substance: PREDNISONE
     Indication: LIVER TRANSPLANT

REACTIONS (6)
  - Neutropenia [Unknown]
  - Toxicity to various agents [Unknown]
  - Anaemia [Unknown]
  - Respiratory disorder [Fatal]
  - Drug intolerance [Unknown]
  - Haematotoxicity [Unknown]
